FAERS Safety Report 6251534-9 (Version None)
Quarter: 2009Q2

REPORT INFORMATION
  Report Type: 
  Country: None (occurrence: None)
  Receive Date: 20090630
  Receipt Date: 20090624
  Transmission Date: 20091009
  Serious: Yes (Other)
  Sender: FDA-Public Use
  Company Number: DE-GENENTECH-284341

PATIENT
  Age: 18 Year
  Sex: Male

DRUGS (5)
  1. NUTROPIN [Suspect]
     Indication: RENAL FAILURE CHRONIC
  2. CYCLOSPORINE [Concomitant]
     Indication: IMMUNOSUPPRESSANT DRUG THERAPY
  3. AZATHIOPRINE [Concomitant]
     Indication: IMMUNOSUPPRESSANT DRUG THERAPY
  4. CORTICOSTEROIDS (UNK INGREDIENTS) [Concomitant]
     Indication: IMMUNOSUPPRESSANT DRUG THERAPY
  5. ORTHOCLONE OKT3 [Concomitant]
     Indication: IMMUNOSUPPRESSANT DRUG THERAPY

REACTIONS (1)
  - RENAL CANCER [None]
